FAERS Safety Report 5092904-4 (Version None)
Quarter: 2006Q3

REPORT INFORMATION
  Report Type: 
  Country: None (occurrence: None)
  Receive Date: 20060830
  Receipt Date: 20060823
  Transmission Date: 20061208
  Serious: Yes (Death, Hospitalization)
  Sender: FDA-Public Use
  Company Number: US-JNJFOC-20060804027

PATIENT
  Sex: Female

DRUGS (3)
  1. PEPCID AC [Suspect]
  2. PEPCID AC [Suspect]
     Indication: DRUG USE FOR UNKNOWN INDICATION
  3. DRUG UNKNOWN [Concomitant]

REACTIONS (1)
  - APLASTIC ANAEMIA [None]
